FAERS Safety Report 6941511-4 (Version None)
Quarter: 2010Q3

REPORT INFORMATION
  Report Type: 
  Country: None (occurrence: None)
  Receive Date: 20100825
  Receipt Date: 20100816
  Transmission Date: 20110219
  Serious: Yes (Hospitalization)
  Sender: FDA-Public Use
  Company Number: US-US-EMD SERONO, INC.-7014519

PATIENT
  Sex: Female

DRUGS (2)
  1. REBIF [Suspect]
     Indication: MULTIPLE SCLEROSIS
     Route: 058
     Dates: start: 20090814
  2. BACLOFEN [Concomitant]
     Indication: MUSCLE SPASTICITY

REACTIONS (7)
  - CONVULSION [None]
  - DIZZINESS [None]
  - EATING DISORDER [None]
  - GAIT DISTURBANCE [None]
  - HALLUCINATION [None]
  - POST PROCEDURAL HAEMORRHAGE [None]
  - VOMITING [None]
